FAERS Safety Report 6375137-0 (Version None)
Quarter: 2009Q3

REPORT INFORMATION
  Report Type: 
  Country: None (occurrence: None)
  Receive Date: 20090924
  Receipt Date: 20090914
  Transmission Date: 20100115
  Serious: Yes (Death)
  Sender: FDA-Public Use
  Company Number: FR-GENENTECH-290342

PATIENT
  Sex: Male

DRUGS (14)
  1. MABTHERA [Suspect]
     Indication: PEMPHIGOID
     Dosage: 1000 MG, UNK
     Route: 042
     Dates: start: 20090701, end: 20090713
  2. TOPALGIC [Concomitant]
     Indication: DRUG USE FOR UNKNOWN INDICATION
  3. MODOPAR [Concomitant]
     Indication: DRUG USE FOR UNKNOWN INDICATION
  4. DIFFU K [Concomitant]
     Indication: DRUG USE FOR UNKNOWN INDICATION
  5. CACIT D3 [Concomitant]
     Indication: DRUG USE FOR UNKNOWN INDICATION
  6. MOPRAL [Concomitant]
     Indication: DRUG USE FOR UNKNOWN INDICATION
  7. VICTAN [Concomitant]
     Indication: DRUG USE FOR UNKNOWN INDICATION
  8. GINKOR [Concomitant]
     Indication: DRUG USE FOR UNKNOWN INDICATION
  9. SERESTA [Concomitant]
     Indication: DRUG USE FOR UNKNOWN INDICATION
  10. FORLAX (FRANCE) [Concomitant]
     Indication: DRUG USE FOR UNKNOWN INDICATION
  11. CASSIA FISTULA [Concomitant]
     Indication: DRUG USE FOR UNKNOWN INDICATION
  12. SODIUM PICOSULFATE [Concomitant]
     Indication: DRUG USE FOR UNKNOWN INDICATION
  13. DUPHALAC [Concomitant]
     Indication: DRUG USE FOR UNKNOWN INDICATION
  14. ATARAX [Concomitant]
     Indication: DRUG USE FOR UNKNOWN INDICATION

REACTIONS (1)
  - CARDIO-RESPIRATORY ARREST [None]
